FAERS Safety Report 7010220-8 (Version None)
Quarter: 2010Q3

REPORT INFORMATION
  Report Type: 
  Country: None (occurrence: None)
  Receive Date: 20100923
  Receipt Date: 20100913
  Transmission Date: 20110219
  Serious: Yes (Hospitalization)
  Sender: FDA-Public Use
  Company Number: GXKR2010US10366

PATIENT
  Age: 49 Year
  Sex: Female

DRUGS (8)
  1. CLOZAPINE [Suspect]
     Indication: SCHIZOPHRENIA, PARANOID TYPE
     Dosage: 250 MG, QD
  2. CLOZAPINE [Suspect]
     Dosage: 300 MG, QD
  3. CLOZAPINE [Suspect]
     Dosage: 25 MG/DAY ON DAY 2 TITRATED UPTO 50 MG BID ON DAY 3
  4. CLOZAPINE [Suspect]
     Dosage: 100 MG BID ON DAY 5
  5. CLOZAPINE [Suspect]
     Dosage: 150 MG, BID
  6. ESCITALOPRAM [Concomitant]
     Dosage: 40 MG/DAY
  7. TRAZODONE HCL [Concomitant]
     Dosage: 200 MG/NIGHT
  8. LAMOTRIGINE [Concomitant]
     Dosage: 100 MG/DAY

REACTIONS (6)
  - CATATONIA [None]
  - CLONUS [None]
  - DRUG WITHDRAWAL SYNDROME [None]
  - MENTAL STATUS CHANGES [None]
  - PUPIL FIXED [None]
  - RESTLESSNESS [None]
